FAERS Safety Report 6555899-X (Version None)
Quarter: 2010Q1

REPORT INFORMATION
  Report Type: 
  Country: None (occurrence: None)
  Receive Date: 20100128
  Receipt Date: 20100118
  Transmission Date: 20100710
  Serious: Yes (Death)
  Sender: FDA-Public Use
  Company Number: US-BAXTER-2009BH003255

PATIENT
  Age: 57 Year
  Sex: Female

DRUGS (2)
  1. HEPARIN SODIUM INJECTION [Suspect]
     Indication: DRUG USE FOR UNKNOWN INDICATION
     Route: 042
     Dates: start: 20080317
  2. HEPARIN SODIUM INJECTION [Suspect]
     Route: 058
     Dates: start: 20080317

REACTIONS (2)
  - CARDIAC ARREST [None]
  - ISCHAEMIC CARDIOMYOPATHY [None]
